FAERS Safety Report 7265734-2 (Version None)
Quarter: 2011Q1

REPORT INFORMATION
  Report Type: 
  Country: None (occurrence: None)
  Receive Date: 20110131
  Receipt Date: 20110119
  Transmission Date: 20110831
  Serious: Yes (Other)
  Sender: FDA-Public Use
  Company Number: JP-ELI_LILLY_AND_COMPANY-JP201101005170

PATIENT
  Age: 38 Year
  Sex: Female

DRUGS (4)
  1. ZYPREXA [Suspect]
     Indication: MANIA
     Dosage: 5 MG, DAILY (1/D)
     Route: 048
  2. ZYPREXA [Suspect]
     Dosage: 10 MG, DAILY (1/D)
     Route: 048
  3. LITHIUM [Concomitant]
     Indication: MANIA
     Dosage: 500 MG, DAILY (1/D)
     Route: 048
  4. ZYPREXA [Suspect]
     Dosage: 15 MG, DAILY (1/D)
     Route: 048
     Dates: start: 20110111

REACTIONS (1)
  - AGRANULOCYTOSIS [None]
